FAERS Safety Report 6252145-1 (Version None)
Quarter: 2009Q2

REPORT INFORMATION
  Report Type: 
  Country: None (occurrence: None)
  Receive Date: 20090630
  Receipt Date: 20060912
  Transmission Date: 20091009
  Serious: Yes (Hospitalization)
  Sender: FDA-Public Use
  Company Number: US-ROCHE-639515

PATIENT
  Sex: Male

DRUGS (14)
  1. ENFUVIRTIDE [Suspect]
     Route: 065
     Dates: start: 20060712, end: 20070701
  2. EPIVIR [Concomitant]
     Dosage: FREQUENCY: QD
     Dates: start: 20060627, end: 20060713
  3. EPIVIR [Concomitant]
     Dosage: FREQUENCY: QD
     Dates: start: 20060713, end: 20060701
  4. KALETRA [Concomitant]
     Dates: start: 20060627, end: 20060801
  5. KALETRA [Concomitant]
     Dates: start: 20060801, end: 20070316
  6. KALETRA [Concomitant]
     Dates: start: 20070316, end: 20080814
  7. NORVIR [Concomitant]
     Dates: start: 20060627, end: 20060713
  8. NORVIR [Concomitant]
     Dosage: FREQUENCY: QD
     Dates: start: 20060713, end: 20060724
  9. NORVIR [Concomitant]
     Dates: start: 20070223, end: 20070311
  10. ZIAGEN [Concomitant]
     Dates: start: 20060627, end: 20070101
  11. ZIAGEN [Concomitant]
     Dates: start: 20070622, end: 20070801
  12. ZITHROMAX [Concomitant]
     Dosage: FREQUENCY: QD
     Dates: start: 20060731, end: 20060809
  13. ZITHROMAX [Concomitant]
     Dosage: FREQUENCY: QD
     Dates: start: 20070316, end: 20070413
  14. BACTRIM DS [Concomitant]
     Dosage: FREQUENCY: QD STOP DATE: 2006
     Dates: start: 20060817

REACTIONS (1)
  - ACUTE MYOCARDIAL INFARCTION [None]
